FAERS Safety Report 23928431 (Version 1)
Quarter: 2024Q2

REPORT INFORMATION
  Report Type: Spontaneous
  Country: US (occurrence: US)
  Receive Date: 20240531
  Receipt Date: 20240531
  Transmission Date: 20240717
  Serious: No
  Sender: FDA-Public Use
  Company Number: US-RADIUS HEALTH INC.-2022US006064

PATIENT
  Age: 84 Year
  Sex: Female

DRUGS (4)
  1. TYMLOS [Suspect]
     Active Substance: ABALOPARATIDE
     Indication: Osteoporosis
     Dosage: 80 MCG, DAILY
     Route: 058
     Dates: start: 20220225
  2. TYMLOS [Suspect]
     Active Substance: ABALOPARATIDE
     Dosage: 60 MCG, DAILY
     Route: 058
     Dates: start: 202205
  3. TYMLOS [Suspect]
     Active Substance: ABALOPARATIDE
     Dosage: 40 MCG, DAILY (HALF DOSE)
     Route: 058
  4. CHLORTHALIDONE [Concomitant]
     Active Substance: CHLORTHALIDONE
     Indication: Hypertension
     Dosage: UNK

REACTIONS (5)
  - Therapy interrupted [Unknown]
  - Fatigue [Recovering/Resolving]
  - Dizziness [Recovering/Resolving]
  - Intentional product misuse [Unknown]
  - Product quality issue [Unknown]

NARRATIVE: CASE EVENT DATE: 20220501
